FAERS Safety Report 9027694 (Version 1)
Quarter: 2013Q1

REPORT INFORMATION
  Report Type: Spontaneous
  Country: CA (occurrence: CA)
  Receive Date: 20130124
  Receipt Date: 20130124
  Transmission Date: 20140127
  Serious: Yes (Other)
  Sender: FDA-Public Use
  Company Number: CA-RANBAXY-2013US-64402

PATIENT
  Sex: 0

DRUGS (1)
  1. MINOCYCLINE [Suspect]
     Indication: MULTIPLE SCLEROSIS
     Dosage: 100 MG, BID
     Route: 048

REACTIONS (2)
  - Dysaesthesia [Unknown]
  - Off label use [Unknown]
